FAERS Safety Report 23982976 (Version 1)
Quarter: 2024Q2

REPORT INFORMATION
  Report Type: Spontaneous
  Country: US (occurrence: US)
  Receive Date: 20240617
  Receipt Date: 20240617
  Transmission Date: 20240716
  Serious: No
  Sender: FDA-Public Use
  Company Number: US-SANDOZ-SDZ2024US058297

PATIENT
  Sex: Female

DRUGS (1)
  1. LIDOCAINE\PRILOCAINE [Suspect]
     Active Substance: LIDOCAINE\PRILOCAINE
     Indication: Product used for unknown indication
     Dosage: UNK, STRENGTH: 2.5/2.5% 30G
     Route: 061

REACTIONS (1)
  - Drug ineffective [Unknown]
